FAERS Safety Report 17708423 (Version 1)
Quarter: 2020Q2

REPORT INFORMATION
  Report Type: Spontaneous
  Country: DK (occurrence: DK)
  Receive Date: 20200426
  Receipt Date: 20200426
  Transmission Date: 20200714
  Serious: Yes (Hospitalization)
  Sender: FDA-Public Use
  Company Number: NVSC2020DK108216

PATIENT
  Age: 67 Year
  Sex: Male

DRUGS (6)
  1. TOUJEO [Concomitant]
     Active Substance: INSULIN GLARGINE
     Indication: DIABETES MELLITUS
     Dosage: 34 IU, QD
     Route: 058
     Dates: start: 20180816
  2. DICILLIN [Concomitant]
     Active Substance: DICLOXACILLIN SODIUM
     Indication: INFECTION
     Dosage: UNK
     Route: 048
     Dates: start: 20180220
  3. OXYCODONE HYDROCHLORIDE. [Concomitant]
     Active Substance: OXYCODONE HYDROCHLORIDE
     Indication: PAIN
     Dosage: 5 MG, PRN
     Route: 048
     Dates: start: 20190919
  4. CIPROFLOXACIN ^HEXAL^ [Suspect]
     Active Substance: CIPROFLOXACIN
     Indication: ARTHRITIS BACTERIAL
     Dosage: 1000 MG, QD (STYRKE:500 MG)
     Route: 048
     Dates: start: 20191223, end: 20200113
  5. PANTOPRAZOL TEVA [Concomitant]
     Active Substance: PANTOPRAZOLE SODIUM
     Indication: GASTROOESOPHAGEAL REFLUX DISEASE
     Dosage: 40 MG, PRN (STYRKE: 40 MG H?JST 1 GANG DAGLIGT   )
     Route: 048
     Dates: start: 20160425
  6. METRONIDAZOL ^DAK^ [Concomitant]
     Active Substance: METRONIDAZOLE
     Indication: INFECTION
     Dosage: 1500 MG, QD
     Route: 048
     Dates: start: 20191211

REACTIONS (3)
  - Myopathy [Not Recovered/Not Resolved]
  - Pain in extremity [Not Recovered/Not Resolved]
  - Gait disturbance [Not Recovered/Not Resolved]

NARRATIVE: CASE EVENT DATE: 20200102
